FAERS Safety Report 6909285-0 (Version None)
Quarter: 2010Q3

REPORT INFORMATION
  Report Type: 
  Country: None (occurrence: None)
  Receive Date: 20100805
  Receipt Date: 20100723
  Transmission Date: 20110219
  Serious: Yes (Other)
  Sender: FDA-Public Use
  Company Number: PHHY2010FR48924

PATIENT
  Age: 66 Year
  Sex: Female

DRUGS (1)
  1. LETROZOLE [Suspect]
     Indication: BREAST CANCER
     Dosage: UNK
     Dates: start: 20050201

REACTIONS (10)
  - ARTHRALGIA [None]
  - ARTHROPATHY [None]
  - BREAST CANCER RECURRENT [None]
  - HYPERGAMMAGLOBULINAEMIA [None]
  - JOINT STIFFNESS [None]
  - METASTASES TO BONE [None]
  - METASTASES TO LIVER [None]
  - METASTASES TO LUNG [None]
  - RHEUMATOID ARTHRITIS [None]
  - SYNOVITIS [None]
